FAERS Safety Report 11025802 (Version 4)
Quarter: 2015Q2

REPORT INFORMATION
  Report Type: Report from Study
  Country: US (occurrence: US)
  Receive Date: 20150414
  Receipt Date: 20150529
  Transmission Date: 20150821
  Serious: Yes (Hospitalization)
  Sender: FDA-Public Use
  Company Number: US-MERCK-1504USA004238

PATIENT
  Age: 3 Year
  Sex: Male
  Weight: 11.9 kg

DRUGS (5)
  1. POLYETHYLENE GLYCOL 3350. [Concomitant]
     Active Substance: POLYETHYLENE GLYCOL 3350
  2. VORINOSTAT [Suspect]
     Active Substance: VORINOSTAT
     Indication: MEDULLOBLASTOMA
     Dosage: 180 MG/M2 ON DAYS 1, 3, 5, 6, 8, 10, 12, 13 (CYCLE 1), DELAY IN STARTING COURSE BECAUSE CALCULATED C
     Route: 048
     Dates: start: 20140623, end: 20140705
  3. VORINOSTAT [Suspect]
     Active Substance: VORINOSTAT
     Dosage: 180 MG/M2 ON DAYS 1, 3, 5, 6, 8, 10, 12, 13 (CYCLE 7), DELAY IN STARTING COURSE BECAUSE CALCULATED C
     Route: 048
     Dates: start: 20150324, end: 20150405
  4. ISOTRETINOIN [Suspect]
     Active Substance: ISOTRETINOIN
     Dosage: 80 MG/M2, BID ON DAYS 1-14 (CYCLE 7)
     Route: 048
     Dates: start: 20150324, end: 20150406
  5. ISOTRETINOIN [Suspect]
     Active Substance: ISOTRETINOIN
     Indication: MEDULLOBLASTOMA
     Dosage: 80 MG/M2, BID ON DAYS 1-14 (CYCLE 1)
     Route: 048
     Dates: start: 20140623, end: 20140706

REACTIONS (1)
  - Device related infection [Recovered/Resolved]

NARRATIVE: CASE EVENT DATE: 20150406
